FAERS Safety Report 11146230 (Version 1)
Quarter: 2015Q2

REPORT INFORMATION
  Report Type: Report from Study
  Country: US (occurrence: US)
  Receive Date: 20150528
  Receipt Date: 20150528
  Transmission Date: 20150821
  Serious: Yes (Other)
  Sender: FDA-Public Use
  Company Number: US-CELGENEUS-USA-2015054094

PATIENT
  Age: 61 Year
  Sex: Female
  Weight: 54.43 kg

DRUGS (3)
  1. DEXAMETHASONE. [Concomitant]
     Active Substance: DEXAMETHASONE
     Indication: PLASMA CELL MYELOMA
     Dosage: .2857 MILLIGRAM/SQ. METER
     Route: 065
     Dates: start: 20150110, end: 20150208
  2. BORTEZOMIB [Concomitant]
     Active Substance: BORTEZOMIB
     Indication: PLASMA CELL MYELOMA
     Route: 065
     Dates: start: 20150110, end: 20150208
  3. REVLIMID [Suspect]
     Active Substance: LENALIDOMIDE
     Indication: PLASMA CELL MYELOMA
     Route: 048
     Dates: start: 20150110, end: 20150208

REACTIONS (1)
  - No therapeutic response [Unknown]

NARRATIVE: CASE EVENT DATE: 20150130
